FAERS Safety Report 8386970-8 (Version None)
Quarter: 2012Q2

REPORT INFORMATION
  Report Type: 
  Country: None (occurrence: None)
  Receive Date: 20120522
  Receipt Date: 20120522
  Transmission Date: 20120825
  Serious: Yes (Other)
  Sender: FDA-Public Use
  Company Number: None

PATIENT
  Age: 68 Year
  Sex: Female
  Weight: 47.6277 kg

DRUGS (1)
  1. IRBESARTAN [Suspect]
     Indication: HYPERTENSION
     Dosage: 1 TABLET ONE TIME DAILY PO
     Route: 048
     Dates: start: 20120430, end: 20120516

REACTIONS (4)
  - BLOOD PRESSURE DECREASED [None]
  - PRODUCT QUALITY ISSUE [None]
  - PRODUCT SUBSTITUTION ISSUE [None]
  - DISCOMFORT [None]
